FAERS Safety Report 5443338-1 (Version None)
Quarter: 2007Q3

REPORT INFORMATION
  Report Type: 
  Country: None (occurrence: None)
  Receive Date: 20070730
  Receipt Date: 20070206
  Transmission Date: 20080115
  Serious: Yes (Death)
  Sender: FDA-Public Use
  Company Number: 234858

PATIENT
  Age: 2 Year
  Sex: Male

DRUGS (1)
  1. RITUXAN [Suspect]
     Indication: LYMPHOPROLIFERATIVE DISORDER
     Dosage: 375 MG/M2, INTRAVENOUS
     Route: 042
     Dates: start: 20070104

REACTIONS (1)
  - MYOCARDIAL INFARCTION [None]
